FAERS Safety Report 4508576-0 (Version None)
Quarter: 2004Q4

REPORT INFORMATION
  Report Type: 
  Country: None (occurrence: None)
  Receive Date: 20041123
  Receipt Date: 20040409
  Transmission Date: 20050328
  Serious: No
  Sender: FDA-Public Use
  Company Number: US-GLAXOSMITHKLINE-A0506509A

PATIENT
  Age: 36 Year
  Sex: Female

DRUGS (4)
  1. WELLBUTRIN SR [Suspect]
     Indication: ANXIETY
     Dosage: 100MG PER DAY
     Route: 048
     Dates: start: 20040406
  2. EFFEXOR XR [Suspect]
     Indication: ANXIETY
     Dosage: 150MG PER DAY
     Route: 048
     Dates: end: 20040403
  3. PROTONIX [Concomitant]
  4. YASMIN [Concomitant]

REACTIONS (2)
  - DIZZINESS [None]
  - INSOMNIA [None]
